FAERS Safety Report 21023887 (Version 1)
Quarter: 2022Q3

REPORT INFORMATION
  Report Type: Report from Study
  Country: BR (occurrence: BR)
  Receive Date: 20220629
  Receipt Date: 20220629
  Transmission Date: 20221026
  Serious: Yes (Other)
  Sender: FDA-Public Use
  Company Number: BR-NOVARTISPH-NVSC2022BR147337

PATIENT
  Sex: Male

DRUGS (1)
  1. EXFORGE HCT [Suspect]
     Active Substance: AMLODIPINE BESYLATE\HYDROCHLOROTHIAZIDE\VALSARTAN
     Indication: Hypertension
     Dosage: (STARTED 15 YEARS AGO)
     Route: 065

REACTIONS (4)
  - Lung neoplasm malignant [Unknown]
  - Illness [Unknown]
  - Blood pressure increased [Unknown]
  - Visual impairment [Unknown]
